FAERS Safety Report 6507717-3 (Version None)
Quarter: 2009Q4

REPORT INFORMATION
  Report Type: 
  Country: None (occurrence: None)
  Receive Date: 20091201
  Receipt Date: 20090210
  Transmission Date: 20100525
  Serious: Yes (Other)
  Sender: FDA-Public Use
  Company Number: 2009-191289-NL

PATIENT
  Age: 23 Year
  Sex: Female
  Weight: 72.6 kg

DRUGS (2)
  1. NUVARING [Suspect]
     Indication: CONTRACEPTION
     Dates: start: 20090128, end: 20090205
  2. TRICYCLEN-LOW [Suspect]
     Dates: start: 20090208

REACTIONS (3)
  - DEEP VEIN THROMBOSIS [None]
  - HEADACHE [None]
  - PULMONARY EMBOLISM [None]
